FAERS Safety Report 8391783-7 (Version None)
Quarter: 2012Q2

REPORT INFORMATION
  Report Type: 
  Country: None (occurrence: None)
  Receive Date: 20120529
  Receipt Date: 20120514
  Transmission Date: 20120825
  Serious: Yes (Other)
  Sender: FDA-Public Use
  Company Number: AU-ABBOTT-12P-008-0939593-00

PATIENT
  Sex: Male

DRUGS (4)
  1. DARUNAVIR HYDRATE [Concomitant]
     Indication: PRODUCT USED FOR UNKNOWN INDICATION
  2. RITONAVIR [Suspect]
     Indication: CD4 LYMPHOCYTES ABNORMAL
  3. RITONAVIR [Suspect]
     Indication: HIV INFECTION
  4. RITONAVIR [Suspect]
     Indication: OPPORTUNISTIC INFECTION

REACTIONS (2)
  - MYELOPATHY [None]
  - TREATMENT NONCOMPLIANCE [None]
